FAERS Safety Report 10034880 (Version 1)
Quarter: 2014Q1

REPORT INFORMATION
  Report Type: Spontaneous
  Country: BR (occurrence: BR)
  Receive Date: 20140325
  Receipt Date: 20140325
  Transmission Date: 20141002
  Serious: Yes (Death, Hospitalization, Other)
  Sender: FDA-Public Use
  Company Number: BR-009507513-1403BRA010422

PATIENT
  Sex: Female

DRUGS (4)
  1. VYTORIN [Suspect]
     Indication: PRODUCT USED FOR UNKNOWN INDICATION
  2. XARELTO [Concomitant]
     Indication: THROMBOSIS PROPHYLAXIS
     Dosage: 15 MG, QD
     Dates: start: 20130531
  3. ACTONEL [Concomitant]
  4. OLMETEC [Concomitant]

REACTIONS (8)
  - Septic shock [Fatal]
  - Pleural effusion [Unknown]
  - Vomiting [Unknown]
  - Cardiac arrest [Unknown]
  - Urosepsis [Fatal]
  - Pulmonary sepsis [Fatal]
  - Urinary tract infection [Unknown]
  - Thrombosis [Unknown]
